FAERS Safety Report 8761657 (Version 1)
Quarter: 2012Q4

REPORT INFORMATION
  Report Type: Spontaneous
  Country: US (occurrence: None)
  Receive Date: 20120830
  Receipt Date: 20120830
  Transmission Date: 20130627
  Serious: Yes (Life-Threatening)
  Sender: FDA-Public Use
  Company Number: None

PATIENT
  Age: 65 Year
  Sex: Female
  Weight: 80.29 kg

DRUGS (1)
  1. ACTOS [Suspect]
     Route: 048
     Dates: start: 20110101, end: 20120730

REACTIONS (1)
  - Cardiac failure congestive [None]
